FAERS Safety Report 7395565-4 (Version None)
Quarter: 2011Q2

REPORT INFORMATION
  Report Type: 
  Country: None (occurrence: None)
  Receive Date: 20110405
  Receipt Date: 20110330
  Transmission Date: 20111010
  Serious: Yes (Hospitalization, Other)
  Sender: FDA-Public Use
  Company Number: PHHO2011US05840

PATIENT
  Sex: Male
  Weight: 83.9 kg

DRUGS (23)
  1. CINACALCET [Concomitant]
     Indication: HYPERPARATHYROIDISM
  2. DOXYCLIN [Concomitant]
     Indication: MOUTH ULCERATION
  3. PLACEBO [Suspect]
     Indication: PANCREATIC NEUROENDOCRINE TUMOUR
     Dosage: UNK
     Route: 048
  4. INSULIN [Concomitant]
     Indication: DIABETES MELLITUS
  5. ATENOLOL [Concomitant]
     Indication: HYPERTENSION
  6. AMOXICILLIN [Concomitant]
     Indication: LIP INFECTION
  7. REPAGLINIDE [Concomitant]
     Indication: DIABETES MELLITUS
  8. METFORMIN [Concomitant]
     Indication: DIABETES MELLITUS
  9. ALENDRONATE [Concomitant]
     Indication: OSTEOPENIA
  10. RESTORIL [Concomitant]
     Indication: INSOMNIA
  11. KENALOG [Concomitant]
     Indication: LIP ULCERATION
  12. RAD 666 [Suspect]
     Indication: PANCREATIC NEUROENDOCRINE TUMOUR
     Dosage: 5 MG, UNK
     Route: 048
     Dates: start: 20090428, end: 20110328
  13. OCTREOTIDE ACETATE [Concomitant]
     Indication: NEUROENDOCRINE TUMOUR
  14. ROSUVASTATIN [Concomitant]
     Indication: HYPERLIPIDAEMIA
  15. ACETAMINOPHEN [Concomitant]
     Indication: INFLUENZA
  16. VIAGRA [Concomitant]
     Indication: ERECTILE DYSFUNCTION
  17. OMEPRAZOLE [Concomitant]
     Indication: GASTRINOMA
     Dosage: UNK
  18. BENAZEPRIL HYDROCHLORIDE [Concomitant]
     Indication: HYPERTENSION
  19. BENADRYL [Concomitant]
     Indication: HYPERSENSITIVITY
  20. SANDOSTATIN LAR [Concomitant]
     Indication: NEUROENDOCRINE TUMOUR
  21. LEVOTHYROXINE [Concomitant]
     Indication: HYPERTHYROIDISM
  22. LORAZEPAM [Concomitant]
     Indication: ANXIETY
  23. CIALIS [Concomitant]
     Indication: ERECTILE DYSFUNCTION

REACTIONS (2)
  - VOMITING [None]
  - FLANK PAIN [None]
